FAERS Safety Report 8842468 (Version 1)
Quarter: 2012Q4

REPORT INFORMATION
  Report Type: 
  Country: FR (occurrence: FR)
  Receive Date: 20121016
  Receipt Date: 20121016
  Transmission Date: 20130627
  Serious: Yes (Other)
  Sender: FDA-Public Use
  Company Number: FR-009507513-1210FRA006415

PATIENT
  Age: 59 Year
  Sex: Male
  Weight: 95 kg

DRUGS (5)
  1. VELMETIA [Suspect]
     Indication: TYPE 2 DIABETES MELLITUS
     Dosage: 1 DF, bid
     Route: 048
     Dates: start: 20101110, end: 20110518
  2. ATACAND [Concomitant]
     Indication: HYPERTENSION
     Dosage: UNK
     Route: 048
     Dates: start: 2005
  3. AMAREL [Concomitant]
     Indication: TYPE 2 DIABETES MELLITUS
     Dosage: 3 mg, bid
     Route: 048
     Dates: start: 2005
  4. TAHOR [Concomitant]
     Indication: HYPERCHOLESTEROLAEMIA
     Dosage: UNK
     Dates: start: 2008
  5. METFORMIN HYDROCHLORIDE [Concomitant]
     Dosage: UNK
     Dates: start: 2005

REACTIONS (5)
  - Pancreatitis [Recovered/Resolved with Sequelae]
  - Lipase increased [Recovered/Resolved with Sequelae]
  - Pyrexia [None]
  - Diarrhoea [None]
  - Hepatic steatosis [None]
